FAERS Safety Report 7978295-7 (Version None)
Quarter: 2011Q4

REPORT INFORMATION
  Report Type: 
  Country: None (occurrence: None)
  Receive Date: 20111214
  Receipt Date: 20111208
  Transmission Date: 20120403
  Serious: Yes (Life-Threatening)
  Sender: FDA-Public Use
  Company Number: JP-PFIZER INC-2011254286

PATIENT
  Age: 63 Year
  Sex: Male
  Weight: 68.6 kg

DRUGS (7)
  1. RABEPRAZOLE SODIUM [Concomitant]
     Indication: GASTRIC ULCER
     Dosage: 1.0 MG, 1X/DAY
     Route: 048
     Dates: start: 20110623, end: 20110703
  2. LOXOPROFEN [Concomitant]
     Indication: GASTRIC ULCER
     Dosage: 60 MG, AS NEEDED
     Dates: start: 20110627
  3. RESTAMIN [Concomitant]
     Indication: PROPHYLAXIS
     Dosage: 30 MG, 1X/DAY
     Route: 048
  4. GASMOTIN [Concomitant]
     Indication: GASTRIC ULCER
     Dosage: 15 MG/DAY
     Route: 048
     Dates: start: 20110623, end: 20110703
  5. REBAMIPIDE [Concomitant]
     Indication: GASTRIC ULCER
     Dosage: 300 MG/DAY
     Route: 048
     Dates: start: 20110623, end: 20110703
  6. MINOTOWA [Concomitant]
     Indication: GASTRIC ULCER
     Dosage: 200 MG/DAY
     Route: 048
     Dates: start: 20110701
  7. TEMSIROLIMUS [Suspect]
     Indication: RENAL CELL CARCINOMA
     Dosage: 25 MG, WEEKLY
     Route: 042
     Dates: start: 20110616

REACTIONS (1)
  - HAEMOPTYSIS [None]
